FAERS Safety Report 4644750-0 (Version None)
Quarter: 2005Q2

REPORT INFORMATION
  Report Type: 
  Country: None (occurrence: None)
  Receive Date: 20050426
  Receipt Date: 20050415
  Transmission Date: 20051028
  Serious: Yes (Hospitalization)
  Sender: FDA-Public Use
  Company Number: 200511364FR

PATIENT
  Age: 79 Year
  Sex: Male
  Weight: 68 kg

DRUGS (7)
  1. LOVENOX [Suspect]
     Indication: PHLEBITIS
     Route: 058
     Dates: start: 20041112, end: 20041218
  2. PREVISCAN 20 MG [Suspect]
     Route: 048
     Dates: end: 20041123
  3. MONICOR LP [Concomitant]
  4. AMLOR [Concomitant]
  5. RABEPRAZOLE SODIUM [Concomitant]
  6. PLAVIX [Concomitant]
  7. ELISOR [Concomitant]
     Route: 048

REACTIONS (3)
  - ANGIOPATHY [None]
  - HEPATITIS CHOLESTATIC [None]
  - HEPATOMEGALY [None]
